FAERS Safety Report 23998347 (Version 1)
Quarter: 2024Q2

REPORT INFORMATION
  Report Type: Report from Study
  Country: JP (occurrence: JP)
  Receive Date: 20240621
  Receipt Date: 20240621
  Transmission Date: 20240716
  Serious: Yes (Life-Threatening)
  Sender: FDA-Public Use
  Company Number: JP-CHUGAI-A2012024722ROCHE

PATIENT
  Age: 63 Year
  Sex: Female

DRUGS (12)
  1. TOCILIZUMAB [Suspect]
     Active Substance: TOCILIZUMAB
     Indication: Rheumatoid arthritis
     Dosage: 392-448MG
     Route: 042
     Dates: start: 20090318, end: 20110309
  2. RHEUMATREX [Concomitant]
     Active Substance: METHOTREXATE SODIUM
     Indication: Rheumatoid arthritis
     Dosage: 8MG,1 TIMES IN 1WEEK
     Route: 050
     Dates: start: 20000918, end: 20110509
  3. FOLIC ACID [Concomitant]
     Active Substance: FOLIC ACID
     Indication: Prophylaxis
     Dosage: 5MG,1 TIMES IN 1WEEK
     Route: 050
     Dates: start: 20100602, end: 20110509
  4. PREDNISOLONE [Concomitant]
     Active Substance: PREDNISOLONE
     Indication: Rheumatoid arthritis
     Dosage: 10MG,1 TIMES IN 1DAY
     Route: 050
     Dates: start: 20090325
  5. PREDNISOLONE [Concomitant]
     Active Substance: PREDNISOLONE
     Indication: Rheumatoid arthritis
     Dosage: 2.5MG,1 TIMES IN 1DAY
     Route: 048
     Dates: start: 20101203, end: 20110509
  6. LOXOPROFEN SODIUM [Concomitant]
     Active Substance: LOXOPROFEN SODIUM
     Indication: Rheumatoid arthritis
     Dosage: 180MG,1 TIMES IN 1DAY
     Route: 048
     Dates: start: 20090318, end: 20110509
  7. LAFUTIDINE [Concomitant]
     Active Substance: LAFUTIDINE
     Indication: Gastritis
     Dosage: 20MG,1 TIMES IN 1DAY
     Route: 050
     Dates: start: 20100507, end: 20110509
  8. LAFUTIDINE [Concomitant]
     Active Substance: LAFUTIDINE
     Indication: Gastritis
     Route: 048
  9. CRESTOR [Concomitant]
     Active Substance: ROSUVASTATIN CALCIUM
     Dosage: 2.5MG,1 TIMES IN 1DAY
     Route: 048
     Dates: start: 20100402, end: 20110509
  10. AMLODIPINE BESYLATE [Concomitant]
     Active Substance: AMLODIPINE BESYLATE
     Route: 048
     Dates: start: 20090819, end: 20110509
  11. CALONAL [Concomitant]
     Active Substance: ACETAMINOPHEN
     Indication: Migraine
     Dosage: 400MG,1 TIMES IN 1DAY
     Route: 048
     Dates: end: 20110509
  12. LANSOPRAZOLE [Concomitant]
     Active Substance: LANSOPRAZOLE
     Indication: Gastrooesophageal reflux disease
     Route: 048

REACTIONS (1)
  - Adult T-cell lymphoma/leukaemia [Unknown]

NARRATIVE: CASE EVENT DATE: 20110420
